FAERS Safety Report 4493978-1 (Version None)
Quarter: 2004Q4

REPORT INFORMATION
  Report Type: 
  Country: None (occurrence: None)
  Receive Date: 20041104
  Receipt Date: 20041104
  Transmission Date: 20050328
  Serious: Yes (Hospitalization)
  Sender: FDA-Public Use
  Company Number: None

PATIENT
  Age: 34 Year
  Sex: Male
  Weight: 45.3597 kg

DRUGS (3)
  1. FOSPHENYTOIN SODIUM [Suspect]
     Indication: ANTICONVULSANT DRUG LEVEL BELOW THERAPEUTIC
     Dosage: 800 MG DAILY IV
     Route: 042
     Dates: start: 20041010, end: 20041013
  2. FOSPHENYTOIN SODIUM [Suspect]
     Indication: CONVULSION
     Dosage: 800 MG DAILY IV
     Route: 042
     Dates: start: 20041010, end: 20041013
  3. PHENYTOIN [Suspect]
     Indication: CONVULSION
     Dosage: 100 MG DAILY  ORAL
     Route: 048
     Dates: start: 20041011, end: 20041013

REACTIONS (2)
  - DEPRESSED LEVEL OF CONSCIOUSNESS [None]
  - MEDICATION ERROR [None]
